FAERS Safety Report 8917364 (Version 1)
Quarter: 2012Q4

REPORT INFORMATION
  Report Type: 
  Country: US (occurrence: US)
  Receive Date: 20121120
  Receipt Date: 20121120
  Transmission Date: 20130627
  Serious: Yes (Other)
  Sender: FDA-Public Use
  Company Number: US-PFIZER INC-2012288351

PATIENT
  Sex: Female
  Weight: 138 kg

DRUGS (2)
  1. NEURONTIN [Suspect]
     Dosage: 300 mg, daily
     Dates: start: 2009
  2. LISINOPRIL [Concomitant]
     Indication: BLOOD PRESSURE HIGH
     Dosage: 20 mg, daily

REACTIONS (3)
  - Sciatic nerve injury [Unknown]
  - Drug ineffective [Unknown]
  - Pain in extremity [Unknown]
